FAERS Safety Report 7996429-5 (Version None)
Quarter: 2011Q4

REPORT INFORMATION
  Report Type: 
  Country: None (occurrence: None)
  Receive Date: 20111220
  Receipt Date: 20111205
  Transmission Date: 20120403
  Serious: Yes (Hospitalization)
  Sender: FDA-Public Use
  Company Number: US-WATSON-2011-21845

PATIENT
  Age: 30 Year
  Sex: Male

DRUGS (1)
  1. IBUPROFEN [Suspect]
     Indication: INTENTIONAL OVERDOSE
     Dosage: 96 G SINGLE
     Route: 048

REACTIONS (6)
  - CIRCULATORY COLLAPSE [None]
  - SHOCK [None]
  - RENAL FAILURE [None]
  - COMA [None]
  - ACIDOSIS [None]
  - OVERDOSE [None]
